FAERS Safety Report 8453491-3 (Version None)
Quarter: 2012Q2

REPORT INFORMATION
  Report Type: 
  Country: None (occurrence: None)
  Receive Date: 20120620
  Receipt Date: 20120521
  Transmission Date: 20120825
  Serious: No
  Sender: FDA-Public Use
  Company Number: US-VERTEX PHARMACEUTICALS INC.-AE-2012-007435

PATIENT
  Sex: Female
  Weight: 52.664 kg

DRUGS (7)
  1. INCIVEK [Suspect]
     Indication: HEPATITIS C
     Route: 048
     Dates: start: 20120517
  2. NEURONTIN [Concomitant]
     Route: 048
  3. SUDAFED 12 HOUR [Concomitant]
     Indication: HYPERSENSITIVITY
     Route: 048
  4. PEGASYS [Concomitant]
     Indication: HEPATITIS C
     Route: 058
     Dates: start: 20120517
  5. RIBAVIRIN [Concomitant]
     Indication: HEPATITIS C
     Route: 048
     Dates: start: 20120517
  6. INDERAL [Concomitant]
     Route: 048
  7. CYMBALTA [Concomitant]
     Route: 048

REACTIONS (9)
  - INSOMNIA [None]
  - URINARY TRACT DISORDER [None]
  - NAUSEA [None]
  - RASH [None]
  - DRY MOUTH [None]
  - CONSTIPATION [None]
  - ABDOMINAL DISTENSION [None]
  - PRURITUS [None]
  - DYSGEUSIA [None]
